FAERS Safety Report 6887831-3 (Version None)
Quarter: 2010Q3

REPORT INFORMATION
  Report Type: 
  Country: None (occurrence: None)
  Receive Date: 20100730
  Receipt Date: 20100712
  Transmission Date: 20110219
  Serious: Yes (Other)
  Sender: FDA-Public Use
  Company Number: US-ROCHE-713725

PATIENT
  Sex: Female
  Weight: 71.6 kg

DRUGS (3)
  1. ACTEMRA [Suspect]
     Dosage: 320 MG, Q4W
     Route: 042
     Dates: start: 20100524, end: 20100628
  2. ACTEMRA [Suspect]
     Dosage: 320 MG, Q4W
     Route: 042
     Dates: start: 20100524, end: 20100628
  3. MTX [Concomitant]
     Indication: PRODUCT USED FOR UNKNOWN INDICATION
     Dosage: 12.5 UNK, UNK
     Route: 048

REACTIONS (1)
  - CONVULSION [None]
